FAERS Safety Report 12089515 (Version 1)
Quarter: 2016Q1

REPORT INFORMATION
  Report Type: Report from Study
  Country: US (occurrence: US)
  Receive Date: 20160218
  Receipt Date: 20160218
  Transmission Date: 20160526
  Serious: Yes (Other)
  Sender: FDA-Public Use
  Company Number: US-BAYER-2016-016637

PATIENT
  Age: 53 Year
  Sex: Male

DRUGS (1)
  1. STIVARGA [Suspect]
     Active Substance: REGORAFENIB
     Indication: COLON CANCER
     Dosage: 160 MG, QD
     Route: 048
     Dates: start: 20160124, end: 20160204

REACTIONS (5)
  - Lung disorder [None]
  - Blood pressure increased [None]
  - Dysphonia [None]
  - Metamorphopsia [None]
  - Headache [None]

NARRATIVE: CASE EVENT DATE: 201601
